FAERS Safety Report 5735537-6 (Version None)
Quarter: 2008Q2

REPORT INFORMATION
  Report Type: 
  Country: None (occurrence: None)
  Receive Date: 20080512
  Receipt Date: 20080501
  Transmission Date: 20081010
  Serious: Yes (Hospitalization)
  Sender: FDA-Public Use
  Company Number: GB-AMGEN-US262646

PATIENT
  Sex: Male
  Weight: 43.6 kg

DRUGS (12)
  1. ENBREL [Suspect]
     Indication: POLYARTHRITIS
     Route: 058
     Dates: start: 20030917
  2. METHOTREXATE [Concomitant]
     Route: 058
     Dates: start: 20041101, end: 20050401
  3. DESMOSPRAY [Concomitant]
     Route: 048
     Dates: start: 20041101
  4. DF118 [Concomitant]
     Dosage: 30 MG AS REQUIRED
     Route: 048
     Dates: start: 20041101
  5. TRIAMCINOLONE ACETONIDE [Concomitant]
     Dosage: DOSE AND FREQUENCY UNKNOWN
     Route: 065
     Dates: start: 20040701
  6. DIHYDROCODEINE [Concomitant]
     Dosage: 30 MG AS REQUIRED
     Route: 048
     Dates: start: 20041101
  7. CODEINE SUL TAB [Concomitant]
     Route: 048
     Dates: end: 20041101
  8. CHLOROFORM WATER, CONCENTRATED/CODEINE PHOSPHATE/OXYMEL OF SQUILL [Concomitant]
     Dosage: UNKNOWN
  9. PIROXICAM [Concomitant]
     Route: 048
     Dates: start: 20030601
  10. METHYLPREDNISOLONE [Concomitant]
     Dates: start: 20031101
  11. PREDNISOLONE [Concomitant]
     Route: 048
     Dates: start: 20030601
  12. PAMIDRONATE DISODIUM [Concomitant]
     Dosage: UNKNOWN
     Route: 042
     Dates: start: 20041101

REACTIONS (1)
  - HIP ARTHROPLASTY [None]
